FAERS Safety Report 20262695 (Version 1)
Quarter: 2021Q4

REPORT INFORMATION
  Report Type: Spontaneous
  Country: GB (occurrence: GB)
  Receive Date: 20211231
  Receipt Date: 20211231
  Transmission Date: 20220303
  Serious: Yes (Other)
  Sender: FDA-Public Use
  Company Number: GB-CELLTRION INC.-2021GB014631

PATIENT

DRUGS (10)
  1. INFLIXIMAB [Suspect]
     Active Substance: INFLIXIMAB
     Indication: Behcet^s syndrome
     Dosage: 489 MG, BASED ON 5MG/KG (PATIENT WAS IN HOSPITAL, UNRELATED)
     Route: 042
     Dates: start: 20210903
  2. INFLIXIMAB [Suspect]
     Active Substance: INFLIXIMAB
     Dosage: 489 MG, BASED ON 5MG/KG
     Route: 042
     Dates: start: 20211012
  3. INFLIXIMAB [Suspect]
     Active Substance: INFLIXIMAB
     Dosage: 489 MG, BASED ON 5MG/KG
     Route: 042
     Dates: start: 20211026
  4. AZATHIOPRINE [Concomitant]
     Active Substance: AZATHIOPRINE
  5. COLCHICINE [Concomitant]
     Active Substance: COLCHICINE
  6. PREDNISOLONE [Concomitant]
     Active Substance: PREDNISOLONE
  7. AMITRIPTYLINE [Concomitant]
     Active Substance: AMITRIPTYLINE
  8. PREGABALIN [Concomitant]
     Active Substance: PREGABALIN
  9. MELOXICAM [Concomitant]
     Active Substance: MELOXICAM
  10. CALCIUM\VITAMIN D [Concomitant]
     Active Substance: CALCIUM\VITAMIN D

REACTIONS (7)
  - Tachycardia [Recovered/Resolved]
  - Erythema [Recovered/Resolved]
  - Erythema [Recovered/Resolved]
  - Erythema [Recovered/Resolved]
  - Rash macular [Recovered/Resolved]
  - Dyspnoea [Recovered/Resolved]
  - Off label use [Unknown]

NARRATIVE: CASE EVENT DATE: 20211012
